FAERS Safety Report 9544299 (Version 6)
Quarter: 2014Q3

REPORT INFORMATION
  Report Type: Spontaneous
  Country: US (occurrence: US)
  Receive Date: 20130923
  Receipt Date: 20140806
  Transmission Date: 20150326
  Serious: Yes (Hospitalization, Disabling, Other)
  Sender: FDA-Public Use
  Company Number: US-009507513-1309USA009821

PATIENT
  Sex: Female
  Weight: 61.22 kg

DRUGS (5)
  1. JANUMET [Suspect]
     Active Substance: METFORMIN HYDROCHLORIDE\SITAGLIPTIN PHOSPHATE
     Indication: TYPE 2 DIABETES MELLITUS
     Dosage: 50/500 MG, BID
     Route: 048
     Dates: start: 20100803, end: 20100817
  2. JANUVIA [Suspect]
     Active Substance: SITAGLIPTIN PHOSPHATE
     Indication: TYPE 2 DIABETES MELLITUS
     Dosage: 100 MG, QD
     Route: 048
     Dates: start: 20100921, end: 20101020
  3. JANUMET [Suspect]
     Active Substance: METFORMIN HYDROCHLORIDE\SITAGLIPTIN PHOSPHATE
     Dosage: 50/1000 MG, BID
     Route: 048
     Dates: start: 20100817, end: 201009
  4. JANUVIA [Suspect]
     Active Substance: SITAGLIPTIN PHOSPHATE
     Dosage: 50 MG, BID
     Route: 048
     Dates: start: 20101021, end: 20120515
  5. JANUVIA [Suspect]
     Active Substance: SITAGLIPTIN PHOSPHATE
     Dosage: 100 MG TAB SPLIT, 1/2 TAB BID
     Route: 048

REACTIONS (21)
  - Glucose tolerance impaired [Not Recovered/Not Resolved]
  - Melanocytic naevus [Unknown]
  - Glaucoma [Unknown]
  - Gastric ileus [Recovered/Resolved]
  - Hot flush [Unknown]
  - Biopsy skin [Unknown]
  - Spinal osteoarthritis [Unknown]
  - Ureteric dilatation [Unknown]
  - Uterine leiomyoma [Unknown]
  - Drug ineffective [Unknown]
  - Pancreatectomy [Unknown]
  - Wrong technique in drug usage process [Unknown]
  - Amenorrhoea [Unknown]
  - Hypertension [Unknown]
  - Mucinous cystadenocarcinoma of pancreas [Recovered/Resolved]
  - Foreign body in eye [Unknown]
  - Malnutrition [Unknown]
  - Atelectasis [Unknown]
  - Uterine leiomyoma [Unknown]
  - Hepatic steatosis [Unknown]
  - Diverticulum intestinal [Unknown]

NARRATIVE: CASE EVENT DATE: 201008
